FAERS Safety Report 5063725-3 (Version None)
Quarter: 2006Q3

REPORT INFORMATION
  Report Type: 
  Country: None (occurrence: None)
  Receive Date: 20060703
  Receipt Date: 20050726
  Transmission Date: 20061208
  Serious: No
  Sender: FDA-Public Use
  Company Number: 2005S1000669

PATIENT
  Age: 51 Year
  Sex: Male

DRUGS (9)
  1. CLOZAPINE [Suspect]
     Indication: SCHIZOPHRENIA, PARANOID TYPE
     Dosage: SEE IMAGE
     Route: 048
     Dates: start: 19990101, end: 20050214
  2. CLOZAPINE [Suspect]
     Indication: SCHIZOPHRENIA, PARANOID TYPE
     Dosage: SEE IMAGE
     Route: 048
     Dates: start: 19990101, end: 20050214
  3. CLOZAPINE [Suspect]
     Indication: SCHIZOPHRENIA, PARANOID TYPE
     Dosage: SEE IMAGE
     Route: 048
     Dates: start: 20050215
  4. CLOZAPINE [Suspect]
     Indication: SCHIZOPHRENIA, PARANOID TYPE
     Dosage: SEE IMAGE
     Route: 048
     Dates: start: 20050215
  5. TRIHEXYPHENIDYL HYDROCHLORIDE [Concomitant]
  6. DIPHENHYDRAMINE HYDROCHLORIDE [Concomitant]
  7. DOCUSATE SODIUM [Concomitant]
  8. VITAMINS NOS [Concomitant]
  9. HALOPERIDOL [Concomitant]

REACTIONS (1)
  - GRANULOCYTOPENIA [None]
